FAERS Safety Report 19439381 (Version 1)
Quarter: 2021Q2

REPORT INFORMATION
  Report Type: Report from Study
  Country: IN (occurrence: IN)
  Receive Date: 20210618
  Receipt Date: 20210618
  Transmission Date: 20210717
  Serious: Yes (Other)
  Sender: FDA-Public Use
  Company Number: PHHY2012IN079638

PATIENT
  Age: 50 Year
  Sex: Female

DRUGS (1)
  1. GLIVEC [Suspect]
     Active Substance: IMATINIB MESYLATE
     Indication: CHRONIC MYELOID LEUKAEMIA
     Dosage: 400 MG (1 X 400MG TABLET)
     Route: 048

REACTIONS (7)
  - Myelofibrosis [Unknown]
  - White blood cell count decreased [Unknown]
  - COVID-19 [Unknown]
  - Haemoglobin decreased [Unknown]
  - Anaemia [Unknown]
  - Platelet count decreased [Unknown]
  - Vomiting [Unknown]

NARRATIVE: CASE EVENT DATE: 20210606
